FAERS Safety Report 7758953-X (Version None)
Quarter: 2011Q3

REPORT INFORMATION
  Report Type: 
  Country: None (occurrence: None)
  Receive Date: 20110919
  Receipt Date: 20110907
  Transmission Date: 20111222
  Serious: Yes (Hospitalization)
  Sender: FDA-Public Use
  Company Number: US-ELI_LILLY_AND_COMPANY-US201107007989

PATIENT
  Sex: Male
  Weight: 111 kg

DRUGS (7)
  1. FORTEO [Suspect]
     Indication: OSTEOPOROSIS
     Dosage: 20 UG, QD
     Route: 058
     Dates: start: 20110301
  2. ASPIRIN [Concomitant]
  3. CALCIUM +D3 [Concomitant]
  4. VITAMIN D [Concomitant]
  5. MIACALCIN [Concomitant]
  6. FORTEO [Suspect]
     Dosage: 20 UG, QD
     Route: 058
  7. VITAMIN D [Concomitant]

REACTIONS (2)
  - SPINAL COLUMN STENOSIS [None]
  - RADICULOPATHY [None]
